FAERS Safety Report 18639125 (Version 1)
Quarter: 2020Q4

REPORT INFORMATION
  Report Type: Spontaneous
  Country: JP (occurrence: JP)
  Receive Date: 20201218
  Receipt Date: 20201218
  Transmission Date: 20210114
  Serious: Yes (Hospitalization, Other)
  Sender: FDA-Public Use
  Company Number: JP-ROCHE-2733475

PATIENT
  Age: 45 Year
  Sex: Female
  Weight: 60 kg

DRUGS (11)
  1. NIPOLAZIN [Concomitant]
     Indication: PREMEDICATION
     Route: 048
     Dates: start: 20200821, end: 20200821
  2. CALONAL [Concomitant]
     Active Substance: ACETAMINOPHEN
     Route: 048
     Dates: start: 20200828, end: 20200828
  3. NIPOLAZIN [Concomitant]
     Route: 048
     Dates: start: 20200904, end: 20200904
  4. TREAKISYM [Concomitant]
     Active Substance: BENDAMUSTINE HYDROCHLORIDE
     Indication: B-CELL LYMPHOMA
     Route: 041
     Dates: start: 20200824
  5. CALONAL [Concomitant]
     Active Substance: ACETAMINOPHEN
     Indication: PREMEDICATION
     Route: 048
     Dates: start: 20200821, end: 20200821
  6. CALONAL [Concomitant]
     Active Substance: ACETAMINOPHEN
     Route: 048
     Dates: start: 20200904, end: 20200904
  7. GAZYVA [Suspect]
     Active Substance: OBINUTUZUMAB
     Route: 041
     Dates: start: 20200828
  8. GAZYVA [Suspect]
     Active Substance: OBINUTUZUMAB
     Route: 041
     Dates: start: 20200904
  9. DAIPHEN [Concomitant]
     Active Substance: SULFAMETHOXAZOLE\TRIMETHOPRIM
     Indication: PROPHYLAXIS
     Dosage: DOSAGE IS UNCERTAIN.
     Route: 048
     Dates: start: 20200822
  10. GAZYVA [Suspect]
     Active Substance: OBINUTUZUMAB
     Indication: B-CELL LYMPHOMA
     Route: 042
     Dates: start: 20200821
  11. NIPOLAZIN [Concomitant]
     Route: 048
     Dates: start: 20200828, end: 20200828

REACTIONS (5)
  - Infusion related reaction [Unknown]
  - Hypotension [Recovering/Resolving]
  - Gastric ulcer [Unknown]
  - Platelet count decreased [Recovering/Resolving]
  - Vomiting [Unknown]

NARRATIVE: CASE EVENT DATE: 20200824
